FAERS Safety Report 8449822-0 (Version None)
Quarter: 2012Q2

REPORT INFORMATION
  Report Type: 
  Country: None (occurrence: None)
  Receive Date: 20120620
  Receipt Date: 20120607
  Transmission Date: 20120825
  Serious: Yes (Other)
  Sender: FDA-Public Use
  Company Number: TH-ELI_LILLY_AND_COMPANY-TH201203007287

PATIENT
  Age: 9 Year
  Sex: Male

DRUGS (3)
  1. RISPERDAL [Concomitant]
  2. STRATTERA [Suspect]
     Dosage: 25 MG, QD
  3. STRATTERA [Suspect]
     Dosage: 40 MG, QD

REACTIONS (1)
  - HYPOKALAEMIA [None]
